FAERS Safety Report 12164428 (Version 2)
Quarter: 2017Q1

REPORT INFORMATION
  Report Type: Spontaneous
  Country: US (occurrence: US)
  Receive Date: 20160309
  Receipt Date: 20170209
  Transmission Date: 20170428
  Serious: No
  Sender: FDA-Public Use
  Company Number: US-ROCHE-1654587

PATIENT
  Sex: Female

DRUGS (1)
  1. XOLAIR [Suspect]
     Active Substance: OMALIZUMAB
     Indication: CHRONIC SPONTANEOUS URTICARIA
     Route: 058
     Dates: start: 201507

REACTIONS (10)
  - Discomfort [Unknown]
  - Hyperhidrosis [Unknown]
  - Idiopathic urticaria [Unknown]
  - Feeling abnormal [Unknown]
  - Injection site swelling [Unknown]
  - Limb discomfort [Unknown]
  - Fatigue [Unknown]
  - Injection site urticaria [Unknown]
  - Tremor [Unknown]
  - Malaise [Unknown]
